FAERS Safety Report 7495797-0 (Version None)
Quarter: 2011Q2

REPORT INFORMATION
  Report Type: 
  Country: None (occurrence: None)
  Receive Date: 20110523
  Receipt Date: 20110516
  Transmission Date: 20111010
  Serious: Yes (Life-Threatening, Hospitalization)
  Sender: FDA-Public Use
  Company Number: DE-ELI_LILLY_AND_COMPANY-DE201105004053

PATIENT
  Age: 25 Year
  Sex: Female
  Weight: 55 kg

DRUGS (4)
  1. PIPAMPERON [Concomitant]
     Dosage: 560 MG, SINGLE
     Dates: start: 20110514, end: 20110514
  2. ALCOHOL [Concomitant]
     Dosage: UNK, SINGLE
     Dates: start: 20110514, end: 20110514
  3. VIVINOX [Concomitant]
     Dosage: 850 MG, SINGLE
     Dates: start: 20110514, end: 20110514
  4. CYMBALTA [Suspect]
     Dosage: 2400 MG, SINGLE
     Dates: start: 20110514, end: 20110514

REACTIONS (7)
  - COMA [None]
  - AGITATION [None]
  - CONVULSION [None]
  - SCREAMING [None]
  - INTENTIONAL OVERDOSE [None]
  - SUICIDE ATTEMPT [None]
  - RESPIRATORY DEPRESSION [None]
